FAERS Safety Report 6737512-1 (Version None)
Quarter: 2010Q2

REPORT INFORMATION
  Report Type: 
  Country: None (occurrence: None)
  Receive Date: 20100521
  Receipt Date: 20100521
  Transmission Date: 20101027
  Serious: Yes (Other)
  Sender: FDA-Public Use
  Company Number: None

PATIENT
  Age: 31 Year
  Sex: Male
  Weight: 96.6162 kg

DRUGS (1)
  1. VALTURNA [Suspect]

REACTIONS (4)
  - COUGH [None]
  - DEPRESSION [None]
  - HYPERTENSION [None]
  - SLUGGISHNESS [None]
